FAERS Safety Report 7581256-3 (Version None)
Quarter: 2011Q2

REPORT INFORMATION
  Report Type: 
  Country: None (occurrence: None)
  Receive Date: 20110629
  Receipt Date: 20110620
  Transmission Date: 20111010
  Serious: Yes (Hospitalization, Other)
  Sender: FDA-Public Use
  Company Number: US-ASTRAZENECA-2004UW24290

PATIENT
  Age: 77 Year
  Sex: Male
  Weight: 74.8 kg

DRUGS (5)
  1. METOPROLOL TARTRATE [Concomitant]
  2. CRESTOR [Suspect]
     Route: 048
     Dates: start: 20100301
  3. CRESTOR [Suspect]
     Indication: HYPERCHOLESTEROLAEMIA
     Route: 048
     Dates: start: 20041101
  4. CRESTOR [Suspect]
     Indication: HYPO HDL CHOLESTEROLAEMIA
     Route: 048
     Dates: start: 20041101
  5. CRESTOR [Suspect]
     Route: 048
     Dates: start: 20100301

REACTIONS (9)
  - HOSPITALISATION [None]
  - LOSS OF CONSCIOUSNESS [None]
  - HEADACHE [None]
  - LIMB DISCOMFORT [None]
  - CEREBROVASCULAR ACCIDENT [None]
  - FEELING HOT [None]
  - SENSATION OF HEAVINESS [None]
  - APHONIA [None]
  - PILOERECTION [None]
